FAERS Safety Report 10088140 (Version 2)
Quarter: 2014Q2

REPORT INFORMATION
  Report Type: Spontaneous
  Country: BR (occurrence: BR)
  Receive Date: 20140421
  Receipt Date: 20140425
  Transmission Date: 20141212
  Serious: Yes (Other)
  Sender: FDA-Public Use
  Company Number: BR-ROCHE-1382699

PATIENT
  Age: 49 Year
  Sex: Female

DRUGS (2)
  1. MABTHERA [Suspect]
     Indication: SJOGREN^S SYNDROME
     Dosage: DAY 1?9/AUG/2012 (DAY 15)
     Route: 065
     Dates: start: 20120726
  2. CYCLOPHOSPHAMIDE [Concomitant]
     Indication: DIABETES MELLITUS
     Route: 048

REACTIONS (4)
  - Myocardial infarction [Recovering/Resolving]
  - Cardiac failure [Recovering/Resolving]
  - Sjogren^s syndrome [Unknown]
  - Ventricular dysfunction [Recovering/Resolving]
